FAERS Safety Report 8074311-5 (Version None)
Quarter: 2012Q1

REPORT INFORMATION
  Report Type: 
  Country: None (occurrence: None)
  Receive Date: 20120126
  Receipt Date: 20120117
  Transmission Date: 20120608
  Serious: Yes (Hospitalization)
  Sender: FDA-Public Use
  Company Number: US-MYLANLABS-2012S1001330

PATIENT
  Age: 26 Year
  Sex: Female

DRUGS (1)
  1. PHENYTOIN SODIUM CAP [Suspect]
     Indication: CONVULSION

REACTIONS (2)
  - GINGIVAL HYPERPLASIA [None]
  - ANTICONVULSANT DRUG LEVEL ABOVE THERAPEUTIC [None]
